FAERS Safety Report 10214044 (Version 3)
Quarter: 2014Q2

REPORT INFORMATION
  Report Type: Spontaneous
  Country: AR (occurrence: AR)
  Receive Date: 20140603
  Receipt Date: 20140613
  Transmission Date: 20141212
  Serious: Yes (Hospitalization, Other)
  Sender: FDA-Public Use
  Company Number: AR-PFIZER INC-2014129190

PATIENT
  Age: 68 Year
  Sex: Female

DRUGS (4)
  1. SUTENT [Suspect]
     Indication: METASTATIC RENAL CELL CARCINOMA
     Dosage: 50 MG, CYCLIC (10 DAYS ON, 7 DAYS OFF)
     Route: 048
     Dates: start: 20140104, end: 20140514
  2. ENALAPRIL [Concomitant]
     Dosage: UNK
  3. LEVOTHYROXINE [Concomitant]
     Dosage: 125 UG, UNK
  4. GLIBENCLAMIDA [Concomitant]
     Dosage: UNK

REACTIONS (2)
  - Second primary malignancy [Recovering/Resolving]
  - Neoplasm [Recovering/Resolving]
